FAERS Safety Report 7969688-2 (Version None)
Quarter: 2011Q4

REPORT INFORMATION
  Report Type: 
  Country: None (occurrence: None)
  Receive Date: 20111212
  Receipt Date: 20111012
  Transmission Date: 20120403
  Serious: Yes (Other)
  Sender: FDA-Public Use
  Company Number: US-JNJFOC-20061202061

PATIENT
  Sex: Female

DRUGS (9)
  1. RISPERDAL [Suspect]
     Indication: DEPRESSION
     Route: 065
  2. ZYPREXA [Suspect]
     Indication: MOOD SWINGS
     Route: 065
  3. ZYPREXA [Suspect]
     Indication: DEPRESSION
     Route: 065
  4. RISPERDAL [Suspect]
     Indication: HALLUCINATION
     Route: 065
  5. ZYPREXA [Suspect]
     Indication: HALLUCINATION
     Route: 065
  6. SEROQUEL [Suspect]
     Indication: MOOD SWINGS
     Route: 065
  7. RISPERDAL [Suspect]
     Indication: MOOD SWINGS
     Route: 065
  8. SEROQUEL [Suspect]
     Indication: HALLUCINATION
     Route: 065
  9. SEROQUEL [Suspect]
     Indication: DEPRESSION
     Route: 065

REACTIONS (4)
  - DIABETIC NEUROPATHY [None]
  - ABNORMAL WEIGHT GAIN [None]
  - TYPE 2 DIABETES MELLITUS [None]
  - PALPITATIONS [None]
